FAERS Safety Report 10414000 (Version 2)
Quarter: 2014Q3

REPORT INFORMATION
  Report Type: Spontaneous
  Country: US (occurrence: US)
  Receive Date: 20140827
  Receipt Date: 20140827
  Transmission Date: 20150326
  Serious: No
  Sender: FDA-Public Use
  Company Number: US-GALDERMA-US14000144

PATIENT
  Age: 69 Year
  Sex: Female

DRUGS (8)
  1. METFORMIN [Concomitant]
     Active Substance: METFORMIN HYDROCHLORIDE
     Indication: DIABETES MELLITUS
     Dosage: 1000 MG
     Route: 048
     Dates: start: 2006
  2. ANTIBACTERIAL SOAP [Concomitant]
     Active Substance: CHLOROXYLENOL
     Indication: THERAPEUTIC SKIN CARE TOPICAL
     Route: 061
  3. LOSARTAN [Concomitant]
     Active Substance: LOSARTAN
     Indication: HYPERTENSION
     Dosage: 25 MG
     Route: 048
     Dates: start: 2006
  4. GLIPIZIDE. [Concomitant]
     Active Substance: GLIPIZIDE
     Indication: DIABETES MELLITUS
     Dosage: 20 MG
     Route: 061
  5. METROGEL [Suspect]
     Active Substance: METRONIDAZOLE
     Indication: ROSACEA
     Dosage: 1%
     Route: 061
     Dates: start: 201304, end: 201307
  6. PRAVASTATIN [Concomitant]
     Active Substance: PRAVASTATIN\PRAVASTATIN SODIUM
     Indication: BLOOD CHOLESTEROL
     Dosage: 40 MG
     Route: 048
     Dates: start: 2006
  7. ASTRINGENT [Concomitant]
     Active Substance: ALUMINUM ACETATE
     Indication: THERAPEUTIC SKIN CARE TOPICAL
     Route: 061
  8. LISINOPRIL. [Concomitant]
     Active Substance: LISINOPRIL
     Route: 048

REACTIONS (1)
  - Drug ineffective [Recovered/Resolved]

NARRATIVE: CASE EVENT DATE: 201304
